FAERS Safety Report 13771389 (Version 3)
Quarter: 2017Q3

REPORT INFORMATION
  Report Type: Spontaneous
  Country: FR (occurrence: FR)
  Receive Date: 20170720
  Receipt Date: 20170914
  Transmission Date: 20171127
  Serious: Yes (Other)
  Sender: FDA-Public Use
  Company Number: FR-ROCHE-1962027

PATIENT
  Sex: Male

DRUGS (4)
  1. BELUSTINE [Suspect]
     Active Substance: LOMUSTINE
     Indication: GLIOBLASTOMA
     Route: 048
     Dates: start: 20170527, end: 20170527
  2. MEDROL [Concomitant]
     Active Substance: METHYLPREDNISOLONE
     Dosage: TABLETS IN THE MORNING
     Route: 065
     Dates: start: 20170618
  3. AVASTIN [Suspect]
     Active Substance: BEVACIZUMAB
     Indication: GLIOBLASTOMA
     Dosage: SOLUTION TO BE DILUTED FOR PERFUSION (STRENGTH-25 MG/ML)
     Route: 042
     Dates: start: 20170511, end: 20170608
  4. KEPPRA [Concomitant]
     Active Substance: LEVETIRACETAM
     Route: 065

REACTIONS (2)
  - Ecchymosis [Recovered/Resolved]
  - Thrombocytopenia [Recovered/Resolved]
